FAERS Safety Report 9403443 (Version 3)
Quarter: 2013Q3

REPORT INFORMATION
  Report Type: Spontaneous
  Country: US (occurrence: US)
  Receive Date: 20130716
  Receipt Date: 20130807
  Transmission Date: 20140515
  Serious: Yes (Other)
  Sender: FDA-Public Use
  Company Number: US-GILEAD-2013-0076942

PATIENT
  Sex: Female

DRUGS (2)
  1. LETAIRIS [Suspect]
     Indication: PULMONARY ARTERIAL HYPERTENSION
     Dosage: 10 MG, QD
     Route: 048
     Dates: start: 20130524
  2. LETAIRIS [Suspect]
     Dosage: 5 MG, QD
     Route: 048

REACTIONS (7)
  - Knee arthroplasty [Unknown]
  - Back pain [Unknown]
  - Skin discolouration [Unknown]
  - Oedema peripheral [Recovered/Resolved]
  - Sinus congestion [Unknown]
  - Sinus congestion [Unknown]
  - Local swelling [Unknown]
